FAERS Safety Report 13532686 (Version 1)
Quarter: 2017Q2

REPORT INFORMATION
  Report Type: Spontaneous
  Country: US (occurrence: US)
  Receive Date: 20170510
  Receipt Date: 20170510
  Transmission Date: 20170830
  Serious: No
  Sender: FDA-Public Use
  Company Number: US-PERRIGO-16US021166

PATIENT
  Age: 82 Year
  Sex: Male
  Weight: 62.13 kg

DRUGS (2)
  1. FAMOTIDINE. [Suspect]
     Active Substance: FAMOTIDINE
     Dosage: LESS THAN 1/2 TABLET, SINGLE
     Route: 048
     Dates: start: 20161019, end: 20161019
  2. FAMOTIDINE. [Suspect]
     Active Substance: FAMOTIDINE
     Indication: GASTROOESOPHAGEAL REFLUX DISEASE
     Dosage: LESS THAN 1/2 TABLET, SINGLE
     Route: 048
     Dates: start: 20160731, end: 20160731

REACTIONS (4)
  - Incorrect dose administered [Recovered/Resolved]
  - Abdominal pain [Not Recovered/Not Resolved]
  - Frequent bowel movements [Recovered/Resolved]
  - Wrong technique in product usage process [Recovered/Resolved]

NARRATIVE: CASE EVENT DATE: 20160731
